FAERS Safety Report 17420963 (Version 1)
Quarter: 2020Q1

REPORT INFORMATION
  Report Type: Spontaneous
  Country: JP (occurrence: JP)
  Receive Date: 20200214
  Receipt Date: 20200214
  Transmission Date: 20200409
  Serious: Yes (Hospitalization)
  Sender: FDA-Public Use
  Company Number: JP-ELI_LILLY_AND_COMPANY-JP202002003152

PATIENT
  Age: 71 Year
  Sex: Female

DRUGS (4)
  1. OLUMIANT [Suspect]
     Active Substance: BARICITINIB
     Dosage: UNK
     Route: 048
     Dates: end: 201906
  2. OLUMIANT [Suspect]
     Active Substance: BARICITINIB
     Dosage: 2 MG, DAILY
     Route: 048
     Dates: start: 20180129, end: 20180213
  3. OLUMIANT [Suspect]
     Active Substance: BARICITINIB
     Dosage: 2 MG, DAILY
     Route: 048
     Dates: start: 20191125, end: 20191202
  4. OLUMIANT [Suspect]
     Active Substance: BARICITINIB
     Indication: RHEUMATOID ARTHRITIS
     Dosage: 2 MG, DAILY
     Route: 048
     Dates: start: 20171106, end: 20180118

REACTIONS (1)
  - Lung abscess [Recovered/Resolved]

NARRATIVE: CASE EVENT DATE: 20191125
